FAERS Safety Report 15316798 (Version 1)
Quarter: 2018Q3

REPORT INFORMATION
  Report Type: Spontaneous
  Country: IT (occurrence: IT)
  Receive Date: 20180824
  Receipt Date: 20180824
  Transmission Date: 20181010
  Serious: Yes (Hospitalization, Other)
  Sender: FDA-Public Use
  Company Number: IT-SAKK-2018SA228617AA

PATIENT
  Age: 11 Year
  Sex: Female
  Weight: 72 kg

DRUGS (19)
  1. ENDOXAN [CYCLOPHOSPHAMIDE MONOHYDRATE] [Suspect]
     Active Substance: CYCLOPHOSPHAMIDE
     Indication: ALLOGENIC BONE MARROW TRANSPLANTATION THERAPY
     Dosage: 3300 MG DAILY
     Route: 042
     Dates: start: 20171113, end: 20171114
  2. ACICLOVIR [Concomitant]
     Active Substance: ACYCLOVIR
     Dosage: 1800 MG
     Route: 042
     Dates: start: 20171114, end: 20171211
  3. FLUCONAZOLE. [Concomitant]
     Active Substance: FLUCONAZOLE
     Dosage: 350 MG
  4. TACHIPIRINA [Concomitant]
     Active Substance: ACETAMINOPHEN
     Dosage: 1 G
     Route: 048
  5. ANTI?THYMOCYTE GLOBULIN (RABBIT) NOS [Suspect]
     Active Substance: LAPINE T-LYMPHOCYTE IMMUNE GLOBULIN
     Dosage: 137.5 MG DAILY
     Route: 042
     Dates: start: 20171113, end: 20171115
  6. THIOTEPA. [Suspect]
     Active Substance: THIOTEPA
     Indication: ALLOGENIC BONE MARROW TRANSPLANTATION THERAPY
     Dosage: 275 MG DAILY
     Route: 042
     Dates: start: 20171111, end: 20171112
  7. URSODEOXYCHOLIC ACID [Concomitant]
     Active Substance: URSODIOL
     Dosage: 600 MG
  8. URBASON [METHYLPREDNISOLONE] [Concomitant]
     Dosage: 40 MG
     Route: 042
     Dates: start: 20171114
  9. RANITIDINE HYDROCHLORIDE. [Concomitant]
     Active Substance: RANITIDINE HYDROCHLORIDE
     Dosage: 150 MG
     Route: 042
  10. ANTRA [OMEPRAZOLE] [Concomitant]
     Dosage: 40 MG
     Route: 042
  11. LASIX [Concomitant]
     Active Substance: FUROSEMIDE
     Dosage: 108 MG
     Route: 042
     Dates: start: 20171110
  12. CIPROFLOXACIN. [Concomitant]
     Active Substance: CIPROFLOXACIN
     Dosage: 1000 MG
     Dates: start: 20171110, end: 20171115
  13. SANDIMMUN [Concomitant]
     Active Substance: CYCLOSPORINE
     Dosage: 180 MG
     Dates: start: 20171113
  14. NYSTATIN. [Concomitant]
     Active Substance: NYSTATIN
     Dosage: 15 ML
  15. METHOTREXATE. [Suspect]
     Active Substance: METHOTREXATE
     Indication: ALLOGENIC BONE MARROW TRANSPLANTATION THERAPY
     Dosage: CYCLICAL
     Route: 042
     Dates: start: 20171119, end: 20171124
  16. TRIMETON [CHLORPHENAMINE MALEATE] [Concomitant]
     Dosage: 2 DF
  17. ACICLOVIR [Concomitant]
     Active Substance: ACYCLOVIR
     Dosage: 2400 UNK
     Route: 048
     Dates: start: 20171110, end: 20171113
  18. ENAPREN [Concomitant]
     Active Substance: ENALAPRIL MALEATE
     Dosage: 5 MG
  19. UROMITEXAN [Concomitant]
     Active Substance: MESNA
     Dosage: 1100 MG
     Route: 042
     Dates: start: 20171115

REACTIONS (3)
  - Pyrexia [Recovering/Resolving]
  - Cytomegalovirus infection [Recovering/Resolving]
  - Pulmonary mass [Recovering/Resolving]

NARRATIVE: CASE EVENT DATE: 20171204
